FAERS Safety Report 23564240 (Version 2)
Quarter: 2024Q1

REPORT INFORMATION
  Report Type: Spontaneous
  Country: JP (occurrence: JP)
  Receive Date: 20240226
  Receipt Date: 20240305
  Transmission Date: 20240409
  Serious: Yes (Life-Threatening, Hospitalization, Other)
  Sender: FDA-Public Use
  Company Number: None

PATIENT
  Age: 19 Year
  Sex: Female

DRUGS (11)
  1. IBUPROFEN [Interacting]
     Active Substance: IBUPROFEN
     Indication: Suicide attempt
     Dosage: 1800 MILLIGRAM (UNITS IN INTERVAL-1 TOTAL)
     Route: 048
  2. CAFFEINE [Interacting]
     Active Substance: CAFFEINE
     Indication: Suicide attempt
     Dosage: 950 MILLIGRAM (UNITS IN INTERVAL-1 TOTAL)
     Route: 048
  3. ESCITALOPRAM [Interacting]
     Active Substance: ESCITALOPRAM OXALATE
     Indication: Eating disorder
     Dosage: 5 MILLIGRAM
     Route: 065
  4. ESCITALOPRAM [Interacting]
     Active Substance: ESCITALOPRAM OXALATE
     Indication: Depression
  5. ACETAMINOPHEN [Interacting]
     Active Substance: ACETAMINOPHEN
     Indication: Suicide attempt
     Dosage: 600 MILLIGRAM (UNITS IN INTERVAL-1 TOTAL)
     Route: 048
  6. CHLORPHENIRAMINE MALEATE [Interacting]
     Active Substance: CHLORPHENIRAMINE MALEATE
     Indication: Suicide attempt
     Dosage: 60 MILLIGRAM (UNITS IN INTERVAL-1 TOTAL)
     Route: 048
  7. DEXTROMETHORPHAN [Interacting]
     Active Substance: DEXTROMETHORPHAN
     Indication: Suicide attempt
     Dosage: 320 DOSAGE FORM (UNITS IN INTERVAL-1 TOTAL))
     Route: 048
  8. DIHYDROCODEINE PHOSPHATE [Interacting]
     Active Substance: DIHYDROCODEINE PHOSPHATE
     Indication: Suicide attempt
     Dosage: 150 MILLIGRAM (UNITS IN INTERVAL-1 TOTAL)
     Route: 048
  9. METHYLEPHEDRINE [Interacting]
     Active Substance: METHYLEPHEDRINE
     Indication: Suicide attempt
     Dosage: 400 MILLIGRAM (UNITS IN INTERVAL-1 TOTAL)
     Route: 048
  10. LITHIUM [Concomitant]
     Active Substance: LITHIUM
     Indication: Eating disorder
     Dosage: 800 MILLIGRAM
     Route: 065
  11. LITHIUM [Concomitant]
     Active Substance: LITHIUM
     Indication: Depression

REACTIONS (8)
  - Toxic encephalopathy [Recovered/Resolved]
  - Electroencephalogram abnormal [Recovered/Resolved]
  - Serotonin syndrome [Recovered/Resolved]
  - Drug interaction [Recovered/Resolved]
  - Coma [Recovered/Resolved]
  - Overdose [Recovered/Resolved]
  - Hallucinations, mixed [Unknown]
  - Euphoric mood [Unknown]
